FAERS Safety Report 6976150-2 (Version None)
Quarter: 2010Q3

REPORT INFORMATION
  Report Type: 
  Country: None (occurrence: None)
  Receive Date: 20100910
  Receipt Date: 20100901
  Transmission Date: 20110219
  Serious: No
  Sender: FDA-Public Use
  Company Number: US-B.I. PHARMACEUTICALS,INC./RIDGEFIELD-2010-BP-10071BP

PATIENT
  Sex: Female

DRUGS (1)
  1. ZANTAC [Suspect]
     Indication: HYPERCHLORHYDRIA
     Route: 048
     Dates: start: 20090101

REACTIONS (1)
  - MEMORY IMPAIRMENT [None]
